FAERS Safety Report 21623314 (Version 3)
Quarter: 2022Q4

REPORT INFORMATION
  Report Type: Spontaneous
  Country: US (occurrence: US)
  Receive Date: 20221121
  Receipt Date: 20221229
  Transmission Date: 20230113
  Serious: No
  Sender: FDA-Public Use
  Company Number: US-GSKCCFUS-Case-01560341_AE-88230

PATIENT
  Sex: Female

DRUGS (1)
  1. BREO ELLIPTA [Suspect]
     Active Substance: FLUTICASONE FUROATE\VILANTEROL TRIFENATATE
     Indication: Product used for unknown indication
     Dosage: UNK,100/25 MCG
     Route: 055

REACTIONS (4)
  - Wrong technique in device usage process [Unknown]
  - Product use issue [Unknown]
  - Product dose omission issue [Unknown]
  - Product complaint [Unknown]
